FAERS Safety Report 14944963 (Version 1)
Quarter: 2018Q2

REPORT INFORMATION
  Report Type: Spontaneous
  Country: FR (occurrence: FR)
  Receive Date: 20180529
  Receipt Date: 20180529
  Transmission Date: 20180711
  Serious: Yes (Other)
  Sender: FDA-Public Use
  Company Number: FR-MERCK KGAA-2048559

PATIENT
  Age: 61 Year
  Sex: Female

DRUGS (1)
  1. NOVOTHYROX [Suspect]
     Active Substance: LEVOTHYROXINE SODIUM
     Indication: HYPOTHYROIDISM
     Dates: start: 201706

REACTIONS (20)
  - Fatigue [None]
  - Nausea [None]
  - Diplopia [None]
  - Depression [None]
  - Hot flush [None]
  - Tendonitis [None]
  - Anxiety [None]
  - Asthenia [None]
  - Arthralgia [None]
  - Paraesthesia [None]
  - Fear [None]
  - Disturbance in attention [None]
  - Disturbance in social behaviour [None]
  - Vomiting [None]
  - Neck pain [None]
  - Phobia of driving [None]
  - Headache [None]
  - Hyperactive pharyngeal reflex [None]
  - Memory impairment [None]
  - Libido decreased [None]

NARRATIVE: CASE EVENT DATE: 20170708
